FAERS Safety Report 8992295 (Version 2)
Quarter: 2013Q1

REPORT INFORMATION
  Report Type: Spontaneous
  Country: US (occurrence: US)
  Receive Date: 20121231
  Receipt Date: 20130115
  Transmission Date: 20140127
  Serious: Yes (Death)
  Sender: FDA-Public Use
  Company Number: US-009507513-1212USA010421

PATIENT
  Age: 60 Year
  Sex: Male

DRUGS (2)
  1. EMEND [Suspect]
     Indication: NAUSEA
     Dosage: TRIFOLD THERAPY
     Route: 048
     Dates: start: 20121206
  2. COREG [Concomitant]

REACTIONS (3)
  - Death [Fatal]
  - Weight decreased [Unknown]
  - Asthenia [Unknown]
